FAERS Safety Report 8266869-8 (Version None)
Quarter: 2012Q2

REPORT INFORMATION
  Report Type: 
  Country: None (occurrence: None)
  Receive Date: 20120409
  Receipt Date: 20120402
  Transmission Date: 20120825
  Serious: No
  Sender: FDA-Public Use
  Company Number: US-BIOGENIDEC-2012BI011704

PATIENT
  Age: 45 Year
  Sex: Male

DRUGS (1)
  1. TYSABRI [Suspect]
     Indication: MULTIPLE SCLEROSIS
     Route: 042
     Dates: start: 20110629

REACTIONS (6)
  - GAIT DISTURBANCE [None]
  - SUICIDAL IDEATION [None]
  - OEDEMA PERIPHERAL [None]
  - NAUSEA [None]
  - APHAGIA [None]
  - DEPRESSION [None]
